FAERS Safety Report 7163327-9 (Version None)
Quarter: 2010Q4

REPORT INFORMATION
  Report Type: 
  Country: None (occurrence: None)
  Receive Date: 20101215
  Receipt Date: 20100329
  Transmission Date: 20110411
  Serious: Yes (Other)
  Sender: FDA-Public Use
  Company Number: US-PFIZER INC-2010040286

PATIENT
  Sex: Male

DRUGS (2)
  1. LYRICA [Suspect]
     Dosage: 50 MG, 1X/DAY
     Dates: start: 20090101
  2. SUDAFED 12 HOUR [Concomitant]
     Indication: SINUS DISORDER
     Dosage: UNK

REACTIONS (2)
  - CONVULSION [None]
  - MUSCLE SPASMS [None]
